FAERS Safety Report 8081255-1 (Version None)
Quarter: 2012Q1

REPORT INFORMATION
  Report Type: 
  Country: None (occurrence: None)
  Receive Date: 20120130
  Receipt Date: 20120127
  Transmission Date: 20120608
  Serious: No
  Sender: FDA-Public Use
  Company Number: US-BAYER-2012-009025

PATIENT
  Sex: Female

DRUGS (1)
  1. MIRENA [Suspect]
     Dosage: 20 MCG/24HR, CONT
     Route: 015
     Dates: start: 20110801

REACTIONS (5)
  - NAUSEA [None]
  - AMENORRHOEA [None]
  - MENORRHAGIA [None]
  - DEVICE BREAKAGE [None]
  - BREAST PAIN [None]
